FAERS Safety Report 21608934 (Version 1)
Quarter: 2022Q4

REPORT INFORMATION
  Report Type: Spontaneous
  Country: US (occurrence: None)
  Receive Date: 20221116
  Receipt Date: 20221116
  Transmission Date: 20230113
  Serious: Yes (Disabling)
  Sender: FDA-Public Use
  Company Number: None

PATIENT
  Age: 31 Year
  Sex: Female
  Weight: 90 kg

DRUGS (1)
  1. SCOPOLAMINE [Suspect]
     Active Substance: SCOPOLAMINE
     Dosage: OTHER QUANTITY : 1 PATCH(ES);?OTHER FREQUENCY : PER 3 DAYS;?
     Route: 062
     Dates: start: 20220703, end: 20220713

REACTIONS (3)
  - Vision blurred [None]
  - Nervous system disorder [None]
  - Visual acuity reduced [None]

NARRATIVE: CASE EVENT DATE: 20220712
